FAERS Safety Report 11379937 (Version 3)
Quarter: 2015Q4

REPORT INFORMATION
  Report Type: Spontaneous
  Country: GB (occurrence: AU)
  Receive Date: 20150814
  Receipt Date: 20151130
  Transmission Date: 20160304
  Serious: Yes (Hospitalization)
  Sender: FDA-Public Use
  Company Number: GB-MERCK-1508AUS003920

PATIENT
  Age: 68 Year
  Sex: Male

DRUGS (9)
  1. INSULIN [Concomitant]
     Active Substance: INSULIN NOS
  2. GEMFIBROZIL. [Suspect]
     Active Substance: GEMFIBROZIL
     Dosage: 600 MG, BID
  3. FEBUXOSTAT. [Suspect]
     Active Substance: FEBUXOSTAT
     Indication: GOUT
     Dosage: 40 MG, QD
  4. FUROSEMIDE. [Concomitant]
     Active Substance: FUROSEMIDE
     Dosage: 40 MG, QD
     Route: 048
  5. MOXONIDINE [Concomitant]
     Active Substance: MOXONIDINE
     Dosage: 200 MG, BID
  6. METOPROLOL [Concomitant]
     Active Substance: METOPROLOL
     Dosage: 100 MG, BID
  7. OMEPRAZOLE. [Concomitant]
     Active Substance: OMEPRAZOLE
     Dosage: 20 MG, QD
     Route: 048
  8. ASPIRIN. [Concomitant]
     Active Substance: ASPIRIN
     Dosage: 100 MG, QD
  9. SIMVASTATIN. [Suspect]
     Active Substance: SIMVASTATIN
     Indication: CHRONIC KIDNEY DISEASE
     Dosage: 40 MG, QD

REACTIONS (5)
  - Hyperkalaemia [Recovered/Resolved]
  - Rhabdomyolysis [Unknown]
  - Chronic kidney disease [Recovered/Resolved]
  - Metabolic acidosis [Recovered/Resolved]
  - Pneumonia haemophilus [Unknown]
